FAERS Safety Report 19451751 (Version 1)
Quarter: 2021Q2

REPORT INFORMATION
  Report Type: Spontaneous
  Country: CN (occurrence: CN)
  Receive Date: 20210623
  Receipt Date: 20210623
  Transmission Date: 20210717
  Serious: Yes (Hospitalization)
  Sender: FDA-Public Use
  Company Number: CN-ROCHE-2855590

PATIENT
  Age: 45 Year
  Sex: Female
  Weight: 44.5 kg

DRUGS (7)
  1. ADALAT [Concomitant]
     Active Substance: NIFEDIPINE
     Indication: BLOOD PRESSURE DECREASED
     Route: 048
     Dates: start: 20210302, end: 20210322
  2. CELLCEPT [Suspect]
     Active Substance: MYCOPHENOLATE MOFETIL\MYCOPHENOLATE MOFETIL HYDROCHLORIDE
     Indication: PROPHYLAXIS AGAINST TRANSPLANT REJECTION
     Route: 048
     Dates: start: 20210302, end: 20210317
  3. IRBESARTAN. [Concomitant]
     Active Substance: IRBESARTAN
     Indication: BLOOD PRESSURE DECREASED
     Route: 048
     Dates: start: 20210302, end: 20210322
  4. INSULIN ASPART [Concomitant]
     Active Substance: INSULIN ASPART
     Indication: HYPOGLYCAEMIA
     Route: 059
     Dates: start: 20210302, end: 20210322
  5. FOLIC ACID. [Concomitant]
     Active Substance: FOLIC ACID
     Route: 048
     Dates: start: 20210302, end: 20210322
  6. METOPROLOL SUCCINATE. [Concomitant]
     Active Substance: METOPROLOL SUCCINATE
     Indication: BLOOD PRESSURE DECREASED
     Route: 048
     Dates: start: 20210302, end: 20210322
  7. LANTUS [Concomitant]
     Active Substance: INSULIN GLARGINE
     Indication: HYPOGLYCAEMIA
     Route: 058
     Dates: start: 20210302, end: 20210322

REACTIONS (5)
  - Nausea [Recovered/Resolved]
  - Abdominal pain [Recovered/Resolved]
  - Chest discomfort [Recovered/Resolved]
  - Dizziness [Recovered/Resolved]
  - Vomiting [Recovered/Resolved]

NARRATIVE: CASE EVENT DATE: 20210311
